FAERS Safety Report 17536429 (Version 1)
Quarter: 2020Q1

REPORT INFORMATION
  Report Type: Spontaneous
  Country: FR (occurrence: FR)
  Receive Date: 20200313
  Receipt Date: 20200313
  Transmission Date: 20200409
  Serious: Yes (Hospitalization)
  Sender: FDA-Public Use
  Company Number: FR-TEVA-2020-FR-1199401

PATIENT
  Age: 62 Year
  Sex: Male
  Weight: 67 kg

DRUGS (19)
  1. DIFFU K [Concomitant]
     Active Substance: POTASSIUM CHLORIDE
  2. AUGMENTIN [Suspect]
     Active Substance: AMOXICILLIN\CLAVULANATE POTASSIUM
     Indication: SEPSIS
     Dosage: UNSPECIFIED
     Route: 042
     Dates: start: 20200128, end: 20200131
  3. TAHOR [Concomitant]
     Active Substance: ATORVASTATIN CALCIUM
  4. XANAX [Concomitant]
     Active Substance: ALPRAZOLAM
  5. ZYVOXID [Suspect]
     Active Substance: LINEZOLID
     Indication: SEPSIS
     Dosage: 1200 MG
     Route: 042
     Dates: start: 20200129, end: 20200131
  6. ELIQUIS [Concomitant]
     Active Substance: APIXABAN
  7. VANCOMYCIN [Suspect]
     Active Substance: VANCOMYCIN
     Indication: SEPSIS
     Dosage: UNKNOWN
     Route: 042
     Dates: start: 20200125, end: 20200128
  8. KEPPRA [Concomitant]
     Active Substance: LEVETIRACETAM
  9. OGASTORO [Concomitant]
     Active Substance: LANSOPRAZOLE
  10. DAFALGAN [Concomitant]
     Active Substance: ACETAMINOPHEN
  11. DEROXAT [Concomitant]
     Active Substance: PAROXETINE HYDROCHLORIDE
  12. LAROXYL [Concomitant]
     Active Substance: AMITRIPTYLINE HYDROCHLORIDE
  13. DUPHALAC [Concomitant]
     Active Substance: LACTULOSE
  14. TRAMADOL (CHLORHYDRATE DE) [Concomitant]
     Active Substance: TRAMADOL HYDROCHLORIDE
  15. ZARZIO [Suspect]
     Active Substance: FILGRASTIM
     Indication: APLASIA
     Dosage: NOT KNOWN
     Route: 042
     Dates: start: 20200127, end: 20200127
  16. TAZOCILLINE [Suspect]
     Active Substance: PIPERACILLIN SODIUM\TAZOBACTAM SODIUM
     Indication: SEPSIS
     Dosage: 16 G
     Route: 042
     Dates: start: 20200123, end: 20200205
  17. DUROGESIC [Concomitant]
     Active Substance: FENTANYL
  18. LERCAN [Concomitant]
     Active Substance: LERCANIDIPINE
  19. KARDEGIC [Concomitant]
     Active Substance: ASPIRIN DL-LYSINE

REACTIONS (1)
  - Epilepsy [Recovered/Resolved]

NARRATIVE: CASE EVENT DATE: 20200130
